FAERS Safety Report 14036499 (Version 1)
Quarter: 2017Q4

REPORT INFORMATION
  Report Type: Spontaneous
  Country: US (occurrence: US)
  Receive Date: 20171003
  Receipt Date: 20171003
  Transmission Date: 20180321
  Serious: No
  Sender: FDA-Public Use
  Company Number: US-ROCHE-1971909

PATIENT
  Age: 65 Year
  Sex: Male

DRUGS (9)
  1. NIFEDIPINE. [Concomitant]
     Active Substance: NIFEDIPINE
  2. ALLOPURINOL. [Concomitant]
     Active Substance: ALLOPURINOL
     Route: 065
  3. ZELBORAF [Suspect]
     Active Substance: VEMURAFENIB
     Indication: MALIGNANT MELANOMA
     Dosage: TAKE 4 TABS BY MOUTH TWICE A DAY
     Route: 048
  4. LISINOPRIL. [Concomitant]
     Active Substance: LISINOPRIL
  5. GARLIC. [Concomitant]
     Active Substance: GARLIC
  6. DOXAZOSIN [Concomitant]
     Active Substance: DOXAZOSIN\DOXAZOSIN MESYLATE
  7. VITAMIN C [Concomitant]
     Active Substance: ASCORBIC ACID
  8. COENZYME Q-10 [Concomitant]
  9. BENADRYL [Concomitant]
     Active Substance: DIPHENHYDRAMINE HYDROCHLORIDE

REACTIONS (1)
  - Swelling face [Unknown]
